FAERS Safety Report 4804211-2 (Version None)
Quarter: 2005Q4

REPORT INFORMATION
  Report Type: 
  Country: None (occurrence: None)
  Receive Date: 20051014
  Receipt Date: 20051006
  Transmission Date: 20060501
  Serious: Yes (Other)
  Sender: FDA-Public Use
  Company Number: 2005138891

PATIENT
  Sex: Female

DRUGS (1)
  1. NEURONTIN [Suspect]
     Indication: NEUROPATHY

REACTIONS (4)
  - ECONOMIC PROBLEM [None]
  - FALL [None]
  - NEUROPATHY [None]
  - SENSORY LOSS [None]
